FAERS Safety Report 7218461-1 (Version None)
Quarter: 2011Q1

REPORT INFORMATION
  Report Type: 
  Country: None (occurrence: None)
  Receive Date: 20110110
  Receipt Date: 20110106
  Transmission Date: 20110831
  Serious: Yes (Hospitalization)
  Sender: FDA-Public Use
  Company Number: JP-PFIZER INC-2010140940

PATIENT
  Age: 79 Year
  Sex: Female
  Weight: 42.5 kg

DRUGS (8)
  1. TEGRETOL [Suspect]
     Dosage: 100 MG, 3X/DAY
     Route: 048
     Dates: start: 20100604
  2. TEGRETOL [Suspect]
     Dosage: 200 MG, 2X/DAY
     Route: 048
     Dates: start: 20100401
  3. ZONISAMIDE [Suspect]
     Indication: POST HERPETIC NEURALGIA
     Dosage: 100 MG, 2X/DAY
     Route: 048
     Dates: end: 20101102
  4. LYRICA [Suspect]
     Indication: TRIGEMINAL NEURALGIA
     Dosage: 75 MG, 1X/DAY
     Route: 048
     Dates: start: 20100714, end: 20101030
  5. TEGRETOL [Suspect]
     Dosage: 100 MG, 2X/DAY
     Route: 048
     Dates: start: 20100423
  6. TEGRETOL [Suspect]
     Indication: TRIGEMINAL NEURALGIA
     Dosage: 200 MG/DAY
     Route: 048
     Dates: start: 20090801
  7. TEGRETOL [Suspect]
     Dosage: 100 MG, 4X/DAY
     Route: 048
     Dates: start: 20100716, end: 20101102
  8. NORVASC [Suspect]
     Indication: HYPERTENSION
     Dosage: 2.5 MG, 2X/DAY
     Route: 048
     Dates: start: 20101029, end: 20101102

REACTIONS (4)
  - GENERALISED ERYTHEMA [None]
  - DIZZINESS [None]
  - ALTERED STATE OF CONSCIOUSNESS [None]
  - MALAISE [None]
